FAERS Safety Report 9644477 (Version 2)
Quarter: 2013Q4

REPORT INFORMATION
  Report Type: Spontaneous
  Country: US (occurrence: US)
  Receive Date: 20131025
  Receipt Date: 20131212
  Transmission Date: 20140711
  Serious: Yes (Death)
  Sender: FDA-Public Use
  Company Number: US-ROCHE-1294223

PATIENT
  Age: 48 Year
  Sex: Male

DRUGS (10)
  1. XOLAIR [Suspect]
     Indication: ASTHMA
     Route: 058
     Dates: start: 200507, end: 20130925
  2. MAXAIR [Concomitant]
  3. ADVAIR DISKUS [Concomitant]
  4. SYMBICORT [Concomitant]
     Route: 065
  5. ALBUTEROL [Concomitant]
     Route: 065
  6. TRAZODONE [Concomitant]
     Route: 065
  7. ALLOPURINOL [Concomitant]
     Route: 065
  8. EPIPEN [Concomitant]
     Route: 065
  9. FLUTICASONE [Concomitant]
     Dosage: 2 SPRAYS DAILY
     Route: 045
  10. CLARITIN [Concomitant]
     Route: 065

REACTIONS (1)
  - Myocardial infarction [Fatal]
